FAERS Safety Report 5721081-9 (Version None)
Quarter: 2008Q2

REPORT INFORMATION
  Report Type: 
  Country: None (occurrence: None)
  Receive Date: 20080429
  Receipt Date: 20080428
  Transmission Date: 20081010
  Serious: Yes (Other)
  Sender: FDA-Public Use
  Company Number: A0724987A

PATIENT
  Age: 37 Year
  Sex: Female

DRUGS (2)
  1. ALLI [Suspect]
  2. UNSPECIFIED MEDICATION [Concomitant]

REACTIONS (3)
  - BLOOD CHOLESTEROL INCREASED [None]
  - HEPATIC ENZYME INCREASED [None]
  - WEIGHT INCREASED [None]
